FAERS Safety Report 24931872 (Version 1)
Quarter: 2025Q1

REPORT INFORMATION
  Report Type: Report from Study
  Country: US (occurrence: US)
  Receive Date: 20250205
  Receipt Date: 20250205
  Transmission Date: 20250408
  Serious: No
  Sender: EXELIXIS
  Company Number: US-EXELIXIS-CABO-24079075

PATIENT
  Sex: Male
  Weight: 81.905 kg

DRUGS (1)
  1. CABOMETYX [Suspect]
     Active Substance: CABOZANTINIB S-MALATE
     Indication: Metastases to adrenals
     Dosage: 20 MG, QD
     Route: 048
     Dates: start: 20240326

REACTIONS (4)
  - Blood pressure diastolic increased [Unknown]
  - Back pain [Unknown]
  - Loss of personal independence in daily activities [Unknown]
  - Off label use [Unknown]
